FAERS Safety Report 17208392 (Version 2)
Quarter: 2021Q4

REPORT INFORMATION
  Report Type: Spontaneous
  Country: US (occurrence: US)
  Receive Date: 20191227
  Receipt Date: 20211129
  Transmission Date: 20220304
  Serious: No
  Sender: FDA-Public Use
  Company Number: US-UCBSA-2018057087

PATIENT
  Age: 14 Year
  Sex: Female

DRUGS (2)
  1. LACOSAMIDE [Suspect]
     Active Substance: LACOSAMIDE
     Indication: Idiopathic generalised epilepsy
     Dosage: 3.5 MG/KG (200 MG)
  2. LACOSAMIDE [Suspect]
     Active Substance: LACOSAMIDE
     Indication: Off label use
     Dosage: 100 MG, 2X/DAY (BID) (1.75 MG/KG/DOSE)

REACTIONS (2)
  - Off label use [Unknown]
  - Treatment noncompliance [Unknown]
